FAERS Safety Report 6002011-1 (Version None)
Quarter: 2008Q4

REPORT INFORMATION
  Report Type: 
  Country: None (occurrence: None)
  Receive Date: 20081212
  Receipt Date: 20081202
  Transmission Date: 20090506
  Serious: Yes (Hospitalization)
  Sender: FDA-Public Use
  Company Number: 2008-04589

PATIENT
  Age: 44 Year
  Sex: Female
  Weight: 85 kg

DRUGS (3)
  1. VELCADE [Suspect]
     Indication: AMYLOIDOSIS
     Dosage: 1.3 MG/M2
     Dates: start: 20080917, end: 20081101
  2. DEXAMETHASONE TAB [Suspect]
     Indication: AMYLOIDOSIS
     Dosage: 20 MG
     Dates: start: 20080917, end: 20081102
  3. MELPHALAN (MELPHALAN) VIAL [Suspect]
     Indication: AMYLOIDOSIS

REACTIONS (2)
  - DIARRHOEA [None]
  - RESPIRATORY SYNCYTIAL VIRUS INFECTION [None]
